FAERS Safety Report 7128474-6 (Version None)
Quarter: 2010Q4

REPORT INFORMATION
  Report Type: 
  Country: None (occurrence: None)
  Receive Date: 20101115
  Receipt Date: 20101029
  Transmission Date: 20110411
  Serious: Yes (Hospitalization)
  Sender: FDA-Public Use
  Company Number: 2009001144

PATIENT
  Age: 59 Year
  Sex: Female
  Weight: 50 kg

DRUGS (10)
  1. ERLOTINIB (ERLOTINIB) (TABLET) (ERLOTINIB) [Suspect]
     Indication: NON-SMALL CELL LUNG CANCER
     Dosage: (150 MG, QD) ORAL
     Route: 048
     Dates: start: 20081208, end: 20090216
  2. SUNITINIB MALATE [Suspect]
     Indication: NON-SMALL CELL LUNG CANCER
     Dosage: 37.5 MG, QD, ORAL
     Route: 048
     Dates: start: 20081208, end: 20090216
  3. MORPHINE SULFATE [Concomitant]
  4. CITALOPRAM HYDROBROMIDE [Concomitant]
  5. ORAMORPH SR [Concomitant]
  6. DICLOFENAC SODIUM [Concomitant]
  7. QVAR [Concomitant]
  8. SALBUTAMOL [Concomitant]
  9. RANITIDINE [Concomitant]
  10. METOCLOPRAMIDE [Concomitant]

REACTIONS (3)
  - NAUSEA [None]
  - PERICARDIAL EFFUSION [None]
  - PLEURAL EFFUSION [None]
